FAERS Safety Report 22354774 (Version 1)
Quarter: 2023Q2

REPORT INFORMATION
  Report Type: Spontaneous
  Country: FR (occurrence: FR)
  Receive Date: 20230523
  Receipt Date: 20230523
  Transmission Date: 20230721
  Serious: Yes (Other)
  Sender: FDA-Public Use
  Company Number: None

PATIENT
  Age: 75 Year
  Sex: Male

DRUGS (5)
  1. AMOXICILLIN [Suspect]
     Active Substance: AMOXICILLIN
     Indication: Lung disorder
     Dosage: 3 GRAM DAILY; AMOXICILLIN 1G: 1 G MORNING, NOON AND EVENING
     Route: 065
     Dates: start: 20230305, end: 20230312
  2. FLAGYL [Suspect]
     Active Substance: METRONIDAZOLE\METRONIDAZOLE HYDROCHLORIDE
     Indication: Pneumonia aspiration
     Dosage: 1500 MILLIGRAM DAILY; FLAGYL: 500 MG MORNING, NOON AND EVENING
     Route: 048
     Dates: start: 20230416, end: 20230417
  3. IOMERON [Suspect]
     Active Substance: IOMEPROL
     Indication: Computerised tomogram abdomen
     Dosage: AP SCANNER ON 04/16 WITH INJECTION OF IOMERON, 85 ML, FORM STRENGTH : 400 MG IODINE/ML
     Route: 065
     Dates: start: 20230416, end: 20230416
  4. SPIRAMYCIN [Suspect]
     Active Substance: SPIRAMYCIN
     Indication: Lung disorder
     Dosage: 9 MILLION INTERNATIONAL UNIT DAILY; ROVAMYCIN: 3MIU 3 TIMES A DAY
     Route: 048
     Dates: start: 20230413, end: 20230417
  5. CEFTRIAXONE SODIUM [Suspect]
     Active Substance: CEFTRIAXONE SODIUM
     Indication: Lung disorder
     Dosage: 1 GRAM DAILY; CEFTRIAXONE: 1G IV PER DAY
     Route: 042
     Dates: start: 20230413, end: 20230417

REACTIONS (1)
  - Rash erythematous [Not Recovered/Not Resolved]

NARRATIVE: CASE EVENT DATE: 20230416
